FAERS Safety Report 10732184 (Version 2)
Quarter: 2015Q1

REPORT INFORMATION
  Report Type: Report from Study
  Country: DE (occurrence: DE)
  Receive Date: 20150123
  Receipt Date: 20150302
  Transmission Date: 20150721
  Serious: Yes (Death, Other)
  Sender: FDA-Public Use
  Company Number: DE-ASTELLAS-2015US002159

PATIENT
  Age: 53 Year
  Sex: Male

DRUGS (1)
  1. ERLOTINIB [Suspect]
     Active Substance: ERLOTINIB
     Indication: LUNG NEOPLASM MALIGNANT
     Route: 065
     Dates: start: 20061204, end: 20070104

REACTIONS (4)
  - Malignant neoplasm progression [Fatal]
  - Skin ulcer [Recovered/Resolved with Sequelae]
  - Rash [Recovered/Resolved with Sequelae]
  - Nail avulsion [Recovered/Resolved with Sequelae]

NARRATIVE: CASE EVENT DATE: 20070104
